FAERS Safety Report 23281191 (Version 1)
Quarter: 2023Q4

REPORT INFORMATION
  Report Type: Report from Study
  Country: GB (occurrence: GB)
  Receive Date: 20231211
  Receipt Date: 20231211
  Transmission Date: 20240110
  Serious: Yes (Hospitalization, Other)
  Sender: FDA-Public Use
  Company Number: GB-002147023-NVSC2023GB150340

PATIENT
  Sex: Female

DRUGS (1)
  1. MAYZENT [Suspect]
     Active Substance: SIPONIMOD
     Indication: Secondary progressive multiple sclerosis
     Dosage: UNK UNK, QD
     Route: 048
     Dates: start: 20220701

REACTIONS (5)
  - Lower respiratory tract infection [Unknown]
  - Multiple sclerosis [Unknown]
  - Musculoskeletal stiffness [Unknown]
  - Weight bearing difficulty [Unknown]
  - Visual impairment [Unknown]
